FAERS Safety Report 25977193 (Version 1)
Quarter: 2025Q4

REPORT INFORMATION
  Report Type: Spontaneous
  Country: EU (occurrence: EU)
  Receive Date: 20251030
  Receipt Date: 20251030
  Transmission Date: 20260118
  Serious: Yes (Hospitalization, Disabling, Other)
  Sender: JOHNSON AND JOHNSON
  Company Number: EU-BAYER-2024A071606

PATIENT
  Age: 61 Year
  Sex: Female

DRUGS (25)
  1. XARELTO [Suspect]
     Active Substance: RIVAROXABAN
     Indication: Product used for unknown indication
     Dosage: 20 MG, QD
     Route: 048
  2. CYPROTERONE ACETATE [Suspect]
     Active Substance: CYPROTERONE ACETATE
     Indication: Product used for unknown indication
     Dosage: UNK
     Route: 048
     Dates: start: 2005
  3. CYPROTERONE ACETATE [Suspect]
     Active Substance: CYPROTERONE ACETATE
     Dosage: UNK
     Dates: start: 201011, end: 201511
  4. CYPROTERONE ACETATE [Suspect]
     Active Substance: CYPROTERONE ACETATE
     Dosage: 50 MG
  5. SMECTA [Concomitant]
     Active Substance: MONTMORILLONITE
     Indication: Gastroenteritis
  6. LOPERAMIDE OXIDE [Concomitant]
     Active Substance: LOPERAMIDE OXIDE
     Indication: Gastroenteritis
  7. MOTILIUM [Concomitant]
     Active Substance: DOMPERIDONE
     Indication: Gastroenteritis
  8. SOTALOL [Concomitant]
     Active Substance: SOTALOL
     Indication: Product used for unknown indication
     Dosage: 80 MG, BID
  9. LYRICA [Concomitant]
     Active Substance: PREGABALIN
     Indication: Product used for unknown indication
     Dosage: 150 MG, BID
     Route: 048
  10. LYRICA [Concomitant]
     Active Substance: PREGABALIN
     Dosage: 300 MG, QD
  11. TRAMADOL HYDROCHLORIDE [Concomitant]
     Active Substance: TRAMADOL HYDROCHLORIDE
     Indication: Product used for unknown indication
     Dosage: PAIN (ACCORDING TO PAIN INTENSITY / VAS OR EN); UP TO 2 CAPSULES PER DOSE DEPENDING ON TOLERANCE AND
  12. ESTRADIOL [Concomitant]
     Active Substance: ESTRADIOL
     Indication: Product used for unknown indication
     Dosage: 1 PATCH TWICE WEEKLY
  13. CORDARONE [Concomitant]
     Active Substance: AMIODARONE HYDROCHLORIDE
     Indication: Product used for unknown indication
     Dosage: 2 TABLETS IN THE MORNING AND 2 TABLETS IN THE EVENING FOR 5 DAYS (STARTING THIS MORNING), THEN 1 TAB
     Route: 048
  14. Atenolol A L [Concomitant]
     Indication: Product used for unknown indication
     Dosage: 50 MG, OM
  15. CHOLECALCIFEROL [Concomitant]
     Active Substance: CHOLECALCIFEROL
     Indication: Product used for unknown indication
     Dosage: 25-OH VITAMIN D3, 17 NG/ML; CALCIUM 2.23 MMOL/L
  16. CALCIUM\CHOLECALCIFEROL [Concomitant]
     Active Substance: CALCIUM\CHOLECALCIFEROL
     Indication: Product used for unknown indication
     Dosage: 1000 IU, QD
     Route: 048
  17. ACLASTA [Concomitant]
     Active Substance: ZOLEDRONIC ACID
     Indication: Product used for unknown indication
     Dosage: 5 MG
  18. ACETAMINOPHEN\CODEINE PHOSPHATE [Concomitant]
     Active Substance: ACETAMINOPHEN\CODEINE PHOSPHATE
     Indication: Product used for unknown indication
  19. SKENAN [Concomitant]
     Active Substance: MORPHINE SULFATE
     Indication: Product used for unknown indication
  20. DAFALGAN [Concomitant]
     Active Substance: ACETAMINOPHEN
     Indication: Product used for unknown indication
  21. CYMBALTA [Concomitant]
     Active Substance: DULOXETINE HYDROCHLORIDE
     Indication: Product used for unknown indication
     Dosage: 30 MG
  22. CYMBALTA [Concomitant]
     Active Substance: DULOXETINE HYDROCHLORIDE
     Dosage: 60 MG
  23. Lamaline [Concomitant]
     Indication: Product used for unknown indication
  24. FENTANYL [Concomitant]
     Active Substance: FENTANYL
     Indication: Product used for unknown indication
  25. OXYCONTIN [Concomitant]
     Active Substance: OXYCODONE HYDROCHLORIDE
     Indication: Product used for unknown indication

REACTIONS (29)
  - Exophthalmos [Unknown]
  - Back pain [Unknown]
  - Meningioma [Unknown]
  - Lumbar vertebral fracture [Unknown]
  - Vitreous haemorrhage [Recovered/Resolved]
  - Squamous cell carcinoma [Unknown]
  - Eye disorder [Not Recovered/Not Resolved]
  - Osteitis deformans [Unknown]
  - Lumbar spinal stenosis [Unknown]
  - Sciatica [Unknown]
  - Abdominal pain [Unknown]
  - Vomiting [Unknown]
  - Eye pain [Unknown]
  - Palmar erythema [Unknown]
  - Neck pain [Unknown]
  - Weight decreased [Unknown]
  - Dry eye [Unknown]
  - Nausea [Unknown]
  - Diarrhoea [Unknown]
  - Diplopia [Unknown]
  - Dysaesthesia [Unknown]
  - Eye discharge [Unknown]
  - Groin pain [Unknown]
  - Visual acuity reduced [Unknown]
  - Tendon disorder [Unknown]
  - Dysaesthesia [Unknown]
  - Urinary incontinence [Unknown]
  - Osteopenia [Unknown]
  - Headache [Unknown]

NARRATIVE: CASE EVENT DATE: 20141008
